FAERS Safety Report 17769689 (Version 10)
Quarter: 2023Q2

REPORT INFORMATION
  Report Type: Spontaneous
  Country: US (occurrence: US)
  Receive Date: 20200512
  Receipt Date: 20230405
  Transmission Date: 20230721
  Serious: Yes (Other)
  Sender: FDA-Public Use
  Company Number: US-PFIZER INC-2020174421

PATIENT
  Age: 72 Year
  Sex: Female
  Weight: 55.34 kg

DRUGS (1)
  1. PREMARIN [Suspect]
     Active Substance: ESTROGENS, CONJUGATED
     Indication: Hormone replacement therapy
     Dosage: 0.625 MG

REACTIONS (3)
  - Drug dependence [Unknown]
  - Cataract [Unknown]
  - Memory impairment [Unknown]
